FAERS Safety Report 10066368 (Version 1)
Quarter: 2014Q2

REPORT INFORMATION
  Report Type: Spontaneous
  Country: US (occurrence: US)
  Receive Date: 20140408
  Receipt Date: 20140408
  Transmission Date: 20141212
  Serious: No
  Sender: FDA-Public Use
  Company Number: US-B.I. PHARMACEUTICALS,INC./RIDGEFIELD-2014-BI-13644BP

PATIENT
  Age: 46 Year
  Sex: Male
  Weight: 136 kg

DRUGS (3)
  1. PRADAXA [Suspect]
     Indication: FACTOR V DEFICIENCY
     Dosage: 300 MG
     Route: 048
     Dates: start: 2013
  2. TRAZADONE [Concomitant]
     Dosage: 200 MG
     Route: 048
  3. PAXIL [Concomitant]
     Indication: OBSESSIVE-COMPULSIVE DISORDER
     Dosage: 100 MG
     Route: 048

REACTIONS (2)
  - Accidental overdose [Recovered/Resolved]
  - Off label use [Unknown]
